FAERS Safety Report 7693003-5 (Version None)
Quarter: 2011Q3

REPORT INFORMATION
  Report Type: 
  Country: None (occurrence: None)
  Receive Date: 20110815
  Receipt Date: 20110802
  Transmission Date: 20111222
  Serious: Yes (Other)
  Sender: FDA-Public Use
  Company Number: 2011SP034961

PATIENT
  Age: 42 Year
  Sex: Female
  Weight: 58 kg

DRUGS (1)
  1. CERAZETTE (DESOGESTREL /00754001/) [Suspect]
     Indication: ENDOMETRIOSIS
     Dosage: QD, PO
     Route: 048
     Dates: start: 20070101

REACTIONS (5)
  - LACTOBACILLUS TEST POSITIVE [None]
  - COLPOSCOPY ABNORMAL [None]
  - CYTOLYTIC VAGINOSIS [None]
  - APPENDICECTOMY [None]
  - TREATMENT NONCOMPLIANCE [None]
